FAERS Safety Report 19079211 (Version 2)
Quarter: 2021Q2

REPORT INFORMATION
  Report Type: Spontaneous
  Country: US (occurrence: US)
  Receive Date: 20210331
  Receipt Date: 20210514
  Transmission Date: 20210717
  Serious: No
  Sender: FDA-Public Use
  Company Number: US-PFIZER INC-2021311604

PATIENT
  Age: 18 Year
  Sex: Female
  Weight: 55.6 kg

DRUGS (32)
  1. HYDROCORTISONE. [Concomitant]
     Active Substance: HYDROCORTISONE
     Dosage: 25 MG
     Route: 042
     Dates: start: 20201127, end: 20210104
  2. PROMETHAZINE [Concomitant]
     Active Substance: PROMETHAZINE HYDROCHLORIDE
     Dosage: 12.5 MG
     Route: 042
     Dates: start: 20201217, end: 20201217
  3. TRIAMCINOLONE [Concomitant]
     Active Substance: TRIAMCINOLONE
     Dosage: 0.5 UNK
     Route: 061
     Dates: start: 20201213, end: 20201219
  4. URSODIOL. [Concomitant]
     Active Substance: URSODIOL
     Dosage: 300 MG
     Route: 048
     Dates: start: 20201212, end: 20201219
  5. ETANERCEPT [Concomitant]
     Active Substance: ETANERCEPT
     Indication: CYTOKINE RELEASE SYNDROME
     Dosage: 50 MG
     Route: 058
     Dates: start: 20201103
  6. TRAMADOL. [Concomitant]
     Active Substance: TRAMADOL
     Dosage: 50 MG
     Route: 048
     Dates: start: 20201104, end: 20201218
  7. ALUMINIUM/MAGNESIUM HYDROXIDE/SIMETICONE [Concomitant]
     Dosage: 15 ML
     Route: 048
     Dates: start: 20201123, end: 20201211
  8. DEXAMETHASONE. [Concomitant]
     Active Substance: DEXAMETHASONE
     Dosage: 8 MG
     Dates: start: 20201208, end: 20201216
  9. LEVOFLOXACIN. [Concomitant]
     Active Substance: LEVOFLOXACIN
     Dosage: 500 MG
     Route: 048
     Dates: start: 20201117, end: 20201218
  10. SODIUM BICARBONATE/SODIUM CHLORIDE [Concomitant]
     Active Substance: SODIUM BICARBONATE\SODIUM CHLORIDE
     Dosage: 15 ML
     Route: 048
     Dates: start: 20201102, end: 20201219
  11. RBC [SACCHARATED IRON OXIDE] [Concomitant]
     Dosage: 356 ML
     Route: 042
     Dates: start: 20201216, end: 20201216
  12. ELUVIXTAMAB. [Concomitant]
     Active Substance: ELUVIXTAMAB
     Indication: ACUTE MYELOID LEUKAEMIA
     Dosage: 1920 UG
     Route: 042
     Dates: start: 20201104
  13. HEPARIN [Concomitant]
     Active Substance: HEPARIN SODIUM
     Dosage: 200 UNK
     Dates: start: 20210101, end: 20210101
  14. MAGNESIUM SULFATE. [Concomitant]
     Active Substance: MAGNESIUM SULFATE
     Dosage: 32 MG/KG
     Route: 042
     Dates: start: 20201119, end: 20201218
  15. MELATONIN [Concomitant]
     Active Substance: MELATONIN
     Dosage: 3 MG
     Route: 048
     Dates: start: 20201209, end: 20201217
  16. PROCHLORPERAZINE. [Concomitant]
     Active Substance: PROCHLORPERAZINE
     Dosage: 10 MG
     Route: 042
     Dates: start: 20201123, end: 20201217
  17. ALLOPURINOL. [Concomitant]
     Active Substance: ALLOPURINOL
     Dosage: 300 MG
     Route: 048
     Dates: start: 20201215, end: 20201219
  18. CASPOFUNGIN [Concomitant]
     Active Substance: CASPOFUNGIN
     Dosage: 70 MG
     Route: 042
     Dates: start: 20201116, end: 20201207
  19. CEFEPIME HCL [Suspect]
     Active Substance: CEFEPIME HYDROCHLORIDE
     Dosage: UNK
     Route: 042
     Dates: end: 20210111
  20. FAMOTIDINE. [Concomitant]
     Active Substance: FAMOTIDINE
     Dosage: 20?40 MG
     Dates: start: 20201119, end: 20210104
  21. FUROSEMIDE. [Concomitant]
     Active Substance: FUROSEMIDE
     Dosage: 10 MG
     Route: 042
     Dates: start: 20201222, end: 20201222
  22. OLANZAPINE. [Concomitant]
     Active Substance: OLANZAPINE
     Dosage: 10 MG
     Route: 048
     Dates: start: 20201218, end: 20201218
  23. SODIUM CHLORIDE. [Concomitant]
     Active Substance: SODIUM CHLORIDE
     Dosage: 100 ML
     Route: 042
     Dates: start: 20201102, end: 20210104
  24. HYDROXYZINE [Concomitant]
     Active Substance: HYDROXYZINE HYDROCHLORIDE
     Dosage: 25 MG
     Route: 048
     Dates: start: 20201119, end: 20201219
  25. VALACYCLOVIR [Concomitant]
     Active Substance: VALACYCLOVIR HYDROCHLORIDE
     Dosage: 500 MG
     Route: 048
     Dates: start: 20201102, end: 20201219
  26. PLATELETS [Concomitant]
     Active Substance: HUMAN PLATELET, ALLOGENIC
     Dosage: 214 ML
     Route: 042
     Dates: start: 20201215, end: 20210104
  27. TOCILIZUMAB. [Concomitant]
     Active Substance: TOCILIZUMAB
     Dosage: 400 MG
     Route: 042
     Dates: start: 20201104, end: 20201215
  28. DIPHENHYDRAMINE. [Concomitant]
     Active Substance: DIPHENHYDRAMINE
     Dosage: UNK
     Dates: start: 20201104, end: 20210104
  29. DIPHENHYDRAMINE/ZINC ACETATE [Concomitant]
     Active Substance: DIPHENHYDRAMINE\ZINC ACETATE
     Dosage: UNK
     Route: 061
     Dates: start: 20201212, end: 20201215
  30. PHENOL. [Concomitant]
     Active Substance: PHENOL
     Dosage: 3 UNK
     Route: 048
     Dates: start: 20201124, end: 20201218
  31. ACETAMINOPHEN. [Concomitant]
     Active Substance: ACETAMINOPHEN
     Dosage: 650 MG
     Route: 048
     Dates: start: 20201102, end: 20210104
  32. CEFTRIAXONE. [Concomitant]
     Active Substance: CEFTRIAXONE
     Dosage: UNK
     Route: 042

REACTIONS (1)
  - Drug ineffective [Unknown]
